FAERS Safety Report 25150488 (Version 1)
Quarter: 2025Q2

REPORT INFORMATION
  Report Type: Report from Study
  Country: CA (occurrence: CA)
  Receive Date: 20250402
  Receipt Date: 20250402
  Transmission Date: 20250717
  Serious: Yes (Other)
  Sender: BIOCON
  Company Number: CA-BIOCON BIOLOGICS LIMITED-BBL2025001796

PATIENT

DRUGS (11)
  1. ADALIMUMAB [Suspect]
     Active Substance: ADALIMUMAB
     Indication: Crohn^s disease
     Dosage: 40 MILLIGRAM, Q2W, SOLUTION FOR INJECTION
     Route: 058
  2. ADALIMUMAB [Suspect]
     Active Substance: ADALIMUMAB
     Route: 058
  3. PREDNISONE [Concomitant]
     Active Substance: PREDNISONE
     Indication: Product used for unknown indication
     Dosage: 40 MILLIGRAM, Q2W
     Route: 065
  4. PREDNISONE [Concomitant]
     Active Substance: PREDNISONE
     Route: 065
  5. PREDNISONE [Concomitant]
     Active Substance: PREDNISONE
     Route: 065
  6. PREDNISONE [Concomitant]
     Active Substance: PREDNISONE
     Route: 065
  7. RISANKIZUMAB [Concomitant]
     Active Substance: RISANKIZUMAB
     Indication: Product used for unknown indication
     Route: 042
  8. RISANKIZUMAB [Concomitant]
     Active Substance: RISANKIZUMAB
     Route: 058
  9. BUDESONIDE [Concomitant]
     Active Substance: BUDESONIDE
     Indication: Product used for unknown indication
     Route: 048
  10. MONOFERRIC [Concomitant]
     Active Substance: FERRIC DERISOMALTOSE
     Indication: Product used for unknown indication
     Route: 042
  11. PANTO [PANTHENOL] [Concomitant]
     Active Substance: PANTHENOL
     Indication: Product used for unknown indication
     Route: 048

REACTIONS (4)
  - Intestinal obstruction [Not Recovered/Not Resolved]
  - Faecal calprotectin increased [Not Recovered/Not Resolved]
  - Fatigue [Not Recovered/Not Resolved]
  - Expired product administered [Not Recovered/Not Resolved]
